FAERS Safety Report 10080404 (Version 1)
Quarter: 2014Q2

REPORT INFORMATION
  Report Type: Spontaneous
  Country: GB (occurrence: GB)
  Receive Date: 20140416
  Receipt Date: 20140416
  Transmission Date: 20141212
  Serious: Yes (Hospitalization, Other)
  Sender: FDA-Public Use
  Company Number: GB-JNJFOC-20140401156

PATIENT
  Age: 51 Year
  Sex: Female

DRUGS (20)
  1. PARACETAMOL [Suspect]
     Indication: PAIN
     Route: 048
  2. PARACETAMOL [Suspect]
     Indication: PAIN
     Dosage: 16 TABLETS
     Route: 048
     Dates: start: 20130307, end: 20130307
  3. PARACETAMOL [Suspect]
     Indication: SUICIDE ATTEMPT
     Dosage: 16 TABLETS
     Route: 048
     Dates: start: 20130307, end: 20130307
  4. PARACETAMOL [Suspect]
     Indication: SUICIDE ATTEMPT
     Route: 048
  5. OMEPRAZOLE [Suspect]
     Indication: DYSPEPSIA
     Route: 048
  6. OMEPRAZOLE [Suspect]
     Indication: DYSPEPSIA
     Dosage: 25 TABLETS
     Route: 048
     Dates: start: 20130307, end: 20130307
  7. OMEPRAZOLE [Suspect]
     Indication: SUICIDE ATTEMPT
     Dosage: 25 TABLETS
     Route: 048
     Dates: start: 20130307, end: 20130307
  8. OMEPRAZOLE [Suspect]
     Indication: SUICIDE ATTEMPT
     Route: 048
  9. AMOXICILLIN [Suspect]
     Indication: SUICIDE ATTEMPT
     Dosage: 20 TABLETS
     Route: 048
     Dates: start: 20130307, end: 20130307
  10. LEVOTHYROXINE [Suspect]
     Indication: HYPOTHYROIDISM
     Dosage: 79
     Route: 048
     Dates: start: 20130307, end: 20130307
  11. LEVOTHYROXINE [Suspect]
     Indication: HYPOTHYROIDISM
     Route: 048
  12. LEVOTHYROXINE [Suspect]
     Indication: SUICIDE ATTEMPT
     Route: 048
  13. LEVOTHYROXINE [Suspect]
     Indication: SUICIDE ATTEMPT
     Dosage: 79
     Route: 048
     Dates: start: 20130307, end: 20130307
  14. CITALOPRAM [Suspect]
     Indication: DEPRESSION
     Route: 048
  15. CITALOPRAM [Suspect]
     Indication: DEPRESSION
     Dosage: 16 TABLETS
     Route: 048
     Dates: start: 20130307, end: 20130307
  16. CITALOPRAM [Suspect]
     Indication: SUICIDE ATTEMPT
     Dosage: 16 TABLETS
     Route: 048
     Dates: start: 20130307, end: 20130307
  17. CITALOPRAM [Suspect]
     Indication: SUICIDE ATTEMPT
     Route: 048
  18. NAPROXEN [Suspect]
     Indication: PAIN
     Route: 048
  19. NAPROXEN [Suspect]
     Indication: PAIN
     Dosage: 14 DOSES
     Route: 048
     Dates: start: 20130307, end: 20130307
  20. STUDY MEDICATION [Concomitant]
     Indication: PSORIASIS
     Dosage: 150MG/300MG
     Route: 058
     Dates: start: 20121214, end: 20130205

REACTIONS (2)
  - Suicide attempt [Recovering/Resolving]
  - Overdose [Recovering/Resolving]
